FAERS Safety Report 9614550 (Version 3)
Quarter: 2013Q4

REPORT INFORMATION
  Report Type: Report from Study
  Country: NL (occurrence: NL)
  Receive Date: 20131011
  Receipt Date: 20131018
  Transmission Date: 20140711
  Serious: Yes (Other)
  Sender: FDA-Public Use
  Company Number: PHHY2013NL085570

PATIENT
  Sex: Male

DRUGS (7)
  1. ACLASTA [Suspect]
     Indication: OSTEOPOROSIS
     Dosage: 5 MG, ONCE EVERY 52 WEEKS
     Route: 042
     Dates: start: 200910
  2. ACLASTA [Suspect]
     Dosage: 5 MG, ONCE EVERY 52 WEEKS
     Route: 042
     Dates: start: 20110916
  3. ACLASTA [Suspect]
     Dosage: 5 MG, ONCE EVERY 52 WEEKS
     Route: 042
     Dates: start: 20120919, end: 201309
  4. FUROSEMIDE [Concomitant]
     Indication: OEDEMA
     Dosage: UNK UKN, UNK
     Route: 048
  5. SPIRONOLACTONE [Concomitant]
     Indication: OEDEMA
     Dosage: UNK UKN, UNK
     Route: 048
  6. FENPROCOUMON [Concomitant]
     Indication: MOVEMENT DISORDER
  7. CALCIUM + VIT D [Concomitant]
     Indication: OSTEOPOROSIS
     Dosage: 500/400
     Route: 048
     Dates: start: 2009

REACTIONS (3)
  - Spinal compression fracture [Unknown]
  - Haemoglobin decreased [Unknown]
  - Renal impairment [Not Recovered/Not Resolved]
